FAERS Safety Report 4834811-5 (Version None)
Quarter: 2005Q4

REPORT INFORMATION
  Report Type: 
  Country: None (occurrence: None)
  Receive Date: 20051114
  Receipt Date: 20051031
  Transmission Date: 20060501
  Serious: Yes (Other)
  Sender: FDA-Public Use
  Company Number: 2005138804

PATIENT
  Age: 59 Year
  Sex: Female
  Weight: 104.3273 kg

DRUGS (12)
  1. NEURONTIN [Suspect]
     Indication: PAIN
     Dosage: 1800 MG (600 MG,3 IN 1 D)
  2. GENTAMICIN SULFATE [Suspect]
     Indication: SKIN ULCER
     Dates: start: 20020101
  3. SYNTHROID [Concomitant]
  4. SINEMET [Concomitant]
  5. LOPRESSOR [Concomitant]
  6. LANOXIN [Concomitant]
  7. VASOTEC [Concomitant]
  8. ACTOS [Concomitant]
  9. ZOCOR [Concomitant]
  10. TRICOR [Concomitant]
  11. ALL OTHER THERAPEUTIC PRODUCTS [Concomitant]
  12. INSULIN [Concomitant]

REACTIONS (13)
  - AMNESIA [None]
  - BALANCE DISORDER [None]
  - DIZZINESS [None]
  - DRUG EFFECT DECREASED [None]
  - EAR DISORDER [None]
  - FLATULENCE [None]
  - HEARING IMPAIRED [None]
  - IMPAIRED WORK ABILITY [None]
  - SKIN ULCER [None]
  - VESTIBULAR DISORDER [None]
  - WALKING AID USER [None]
  - WEIGHT DECREASED [None]
  - WEIGHT INCREASED [None]
